FAERS Safety Report 4866182-2 (Version None)
Quarter: 2005Q4

REPORT INFORMATION
  Report Type: 
  Country: None (occurrence: None)
  Receive Date: 20051221
  Receipt Date: 20051205
  Transmission Date: 20060501
  Serious: Yes (Death)
  Sender: FDA-Public Use
  Company Number: 2021

PATIENT
  Age: 21 Year
  Sex: Male

DRUGS (4)
  1. AVINZA [Suspect]
     Dosage: 120 MG DAILY PO
     Route: 048
     Dates: start: 20050701, end: 20050702
  2. ALCOHOL [Concomitant]
  3. MARIJUANA [Concomitant]
  4. OXYCODONE AND ACETAMINOPHEN [Concomitant]

REACTIONS (4)
  - ALCOHOL USE [None]
  - DRUG ABUSER [None]
  - OVERDOSE [None]
  - RESPIRATORY ARREST [None]
